FAERS Safety Report 5323586-1 (Version None)
Quarter: 2007Q2

REPORT INFORMATION
  Report Type: 
  Country: None (occurrence: None)
  Receive Date: 20070514
  Receipt Date: 20070503
  Transmission Date: 20071010
  Serious: Yes (Hospitalization)
  Sender: FDA-Public Use
  Company Number: US-AMGEN-STX222969

PATIENT
  Sex: Female

DRUGS (3)
  1. ENBREL [Suspect]
     Indication: RHEUMATOID ARTHRITIS
     Route: 058
     Dates: start: 20011101
  2. METHOTREXATE [Concomitant]
     Route: 065
  3. PLAQUENIL [Concomitant]
     Route: 065

REACTIONS (3)
  - ABDOMINAL MASS [None]
  - GASTROENTERITIS VIRAL [None]
  - THROMBOSIS [None]
